FAERS Safety Report 9731833 (Version 1)
Quarter: 2013Q4

REPORT INFORMATION
  Report Type: Spontaneous
  Country: US (occurrence: US)
  Receive Date: 20131205
  Receipt Date: 20131205
  Transmission Date: 20140711
  Serious: Yes (Hospitalization, Other)
  Sender: FDA-Public Use
  Company Number: US-ENDO PHARMACEUTICALS INC.-HCDA20120042

PATIENT
  Age: 30 Year
  Sex: Male

DRUGS (2)
  1. HYDROCODONE/ACETAMINOPHEN [Suspect]
     Indication: BACK INJURY
     Dosage: UNK
     Route: 048
     Dates: start: 2009
  2. HYDROCODONE/ACETAMINOPHEN [Suspect]
     Dosage: UNK

REACTIONS (5)
  - Drug dependence [Recovered/Resolved]
  - Intentional drug misuse [Recovered/Resolved]
  - Drug tolerance [Recovered/Resolved]
  - Drug abuse [Recovered/Resolved]
  - Withdrawal syndrome [Recovered/Resolved]
